FAERS Safety Report 12642192 (Version 2)
Quarter: 2016Q3

REPORT INFORMATION
  Report Type: Spontaneous
  Country: JP (occurrence: JP)
  Receive Date: 20160810
  Receipt Date: 20160822
  Transmission Date: 20161109
  Serious: Yes (Other)
  Sender: FDA-Public Use
  Company Number: JP-PFIZER INC-2016378746

PATIENT
  Age: 78 Year
  Sex: Male

DRUGS (6)
  1. MOHRUS [Concomitant]
     Active Substance: KETOPROFEN
     Indication: RIB FRACTURE
     Dosage: 30 MG, UNK
     Dates: start: 20160726
  2. CELECOX [Suspect]
     Active Substance: CELECOXIB
     Indication: CHEST INJURY
  3. LYRICA [Concomitant]
     Active Substance: PREGABALIN
     Dosage: 25 MG, 3X/DAY
     Route: 048
     Dates: start: 20160426
  4. LANDSEN [Concomitant]
     Active Substance: CLONAZEPAM
     Dosage: UNK, 2X/DAY, 0.5 X 2
     Dates: start: 20160426
  5. TAKEPRON [Concomitant]
     Active Substance: LANSOPRAZOLE
     Indication: RIB FRACTURE
     Dosage: 15 MG, 2X/DAY
     Route: 048
     Dates: start: 20160726
  6. CELECOX [Suspect]
     Active Substance: CELECOXIB
     Indication: RIB FRACTURE
     Dosage: 200 MG, 2X/DAY
     Route: 048
     Dates: start: 20160726, end: 20160729

REACTIONS (1)
  - Drug eruption [Recovering/Resolving]

NARRATIVE: CASE EVENT DATE: 20160726
